FAERS Safety Report 6543602-9 (Version None)
Quarter: 2010Q1

REPORT INFORMATION
  Report Type: 
  Country: None (occurrence: None)
  Receive Date: 20100119
  Receipt Date: 20100119
  Transmission Date: 20100710
  Serious: No
  Sender: FDA-Public Use
  Company Number: None

PATIENT
  Sex: Female
  Weight: 55.3388 kg

DRUGS (1)
  1. CALCITONIN SALMON [Suspect]
     Indication: OSTEOPOROSIS
     Dosage: ONE SPRAY Q.D. NOSE STILL ON IT
     Route: 045
     Dates: start: 20060101

REACTIONS (2)
  - NASAL DISCOMFORT [None]
  - PRODUCT SUBSTITUTION ISSUE [None]
